FAERS Safety Report 4820699-5 (Version None)
Quarter: 2005Q4

REPORT INFORMATION
  Report Type: 
  Country: None (occurrence: None)
  Receive Date: 20051103
  Receipt Date: 20051027
  Transmission Date: 20060501
  Serious: Yes (Hospitalization)
  Sender: FDA-Public Use
  Company Number: 2005-134047-NL

PATIENT
  Age: 24 Year
  Sex: Male

DRUGS (4)
  1. VECURONIUM BROMIDE [Suspect]
     Indication: ANAESTHESIA
     Route: 042
  2. CEFAZOLIN [Concomitant]
  3. PROPOFOL [Concomitant]
  4. FENTANYL [Concomitant]

REACTIONS (6)
  - ANAESTHETIC COMPLICATION [None]
  - ANAPHYLACTIC SHOCK [None]
  - ERYTHEMA [None]
  - PROCEDURAL COMPLICATION [None]
  - RESPIRATORY DISORDER [None]
  - SKIN TEST POSITIVE [None]
